FAERS Safety Report 22134978 (Version 1)
Quarter: 2023Q1

REPORT INFORMATION
  Report Type: Spontaneous
  Country: US (occurrence: None)
  Receive Date: 20230323
  Receipt Date: 20230323
  Transmission Date: 20230418
  Serious: Yes (Life-Threatening, Hospitalization, Disabling, Other)
  Sender: FDA-Public Use
  Company Number: None

PATIENT
  Age: 48 Year
  Sex: Female
  Weight: 83.25 kg

DRUGS (3)
  1. ARTIFICIAL TEARS LUBRICANT EYE DROPS (CARBOXYMETHYLCELLULOSE SODIUM) [Suspect]
     Active Substance: CARBOXYMETHYLCELLULOSE SODIUM
     Indication: Eye lubrication therapy
     Dosage: OTHER QUANTITY : 100 DROP(S);?FREQUENCY : AS NEEDED;?
     Route: 047
     Dates: start: 20190101, end: 20230322
  2. Liquid Iron supplemen [Concomitant]
  3. VITAMINS [Concomitant]
     Active Substance: VITAMINS

REACTIONS (18)
  - Eye pain [None]
  - Eye discharge [None]
  - Vision blurred [None]
  - Dizziness [None]
  - Ear pain [None]
  - Nausea [None]
  - Blindness transient [None]
  - Photophobia [None]
  - Dyspnoea [None]
  - Chest pain [None]
  - Hypermetropia [None]
  - Ocular hyperaemia [None]
  - Foreign body sensation in eyes [None]
  - Lacrimation increased [None]
  - Eyelid function disorder [None]
  - Eye irritation [None]
  - Eye pain [None]
  - Eyelid irritation [None]

NARRATIVE: CASE EVENT DATE: 20230301
